FAERS Safety Report 5826867-8 (Version None)
Quarter: 2008Q3

REPORT INFORMATION
  Report Type: 
  Country: None (occurrence: None)
  Receive Date: 20080729
  Receipt Date: 20080729
  Transmission Date: 20090109
  Serious: Yes (Hospitalization)
  Sender: FDA-Public Use
  Company Number: None

PATIENT
  Age: 62 Year
  Sex: Male
  Weight: 86 kg

DRUGS (4)
  1. BEVACIZUMAB [Suspect]
     Indication: ANAPLASTIC ASTROCYTOMA
     Dosage: 10MG/KG IV QOW
     Route: 042
     Dates: start: 20080324, end: 20080504
  2. ERLOTINIB [Suspect]
     Indication: ANAPLASTIC ASTROCYTOMA
     Dosage: 200MG PO QD
     Route: 048
     Dates: start: 20080324, end: 20080504
  3. KEPPRA [Concomitant]
  4. ZOFRAN [Concomitant]

REACTIONS (2)
  - HYPOTENSION [None]
  - ULCER HAEMORRHAGE [None]
